FAERS Safety Report 4816085-4 (Version None)
Quarter: 2005Q4

REPORT INFORMATION
  Report Type: 
  Country: None (occurrence: None)
  Receive Date: 20051031
  Receipt Date: 20051024
  Transmission Date: 20060501
  Serious: Yes (Death, Life-Threatening)
  Sender: FDA-Public Use
  Company Number: FR-BRISTOL-MYERS SQUIBB COMPANY-13158332

PATIENT
  Age: 54 Year
  Sex: Male
  Weight: 84 kg

DRUGS (2)
  1. SUSTIVA [Suspect]
     Indication: HIV INFECTION
     Route: 048
     Dates: start: 20040830
  2. COMBIVIR [Suspect]
     Indication: HIV INFECTION
     Dates: start: 20021001

REACTIONS (2)
  - MALAISE [None]
  - SUDDEN DEATH [None]
